FAERS Safety Report 5928275-8 (Version None)
Quarter: 2008Q4

REPORT INFORMATION
  Report Type: 
  Country: None (occurrence: None)
  Receive Date: 20081023
  Receipt Date: 20081009
  Transmission Date: 20090506
  Serious: Yes (Hospitalization)
  Sender: FDA-Public Use
  Company Number: FR-GENENTECH-267719

PATIENT
  Sex: Female

DRUGS (7)
  1. AVASTIN [Suspect]
     Indication: OVARIAN NEOPLASM
     Dosage: 630 MG, QD
     Route: 042
     Dates: start: 20080715
  2. ZOPHREN [Suspect]
     Indication: PREMEDICATION
     Dosage: 4 MG, QD
     Route: 042
     Dates: start: 20080715
  3. PLITICAN [Suspect]
     Indication: PREMEDICATION
     Dosage: 50 MG, QD
     Route: 042
     Dates: start: 20080715
  4. CARBOPLATIN [Suspect]
     Indication: OVARIAN NEOPLASM
     Dosage: 340 MG, QD
     Route: 042
     Dates: start: 20080715
  5. SOLU-MEDROL [Concomitant]
     Indication: DRUG USE FOR UNKNOWN INDICATION
     Dosage: UNK
     Dates: start: 20080715, end: 20080715
  6. POLARAMINE [Concomitant]
     Indication: DRUG USE FOR UNKNOWN INDICATION
  7. METHYLPREDNISOLONE 16MG TAB [Concomitant]
     Indication: DRUG USE FOR UNKNOWN INDICATION

REACTIONS (4)
  - ERYTHEMA [None]
  - HYPERSENSITIVITY [None]
  - NAUSEA [None]
  - VOMITING [None]
